FAERS Safety Report 9425178 (Version 1)
Quarter: 2013Q3

REPORT INFORMATION
  Report Type: Spontaneous
  Country: BR (occurrence: BR)
  Receive Date: 20130729
  Receipt Date: 20130729
  Transmission Date: 20140515
  Serious: Yes (Hospitalization)
  Sender: FDA-Public Use
  Company Number: BR-PFIZER INC-2013216844

PATIENT
  Age: 52 Year
  Sex: Female

DRUGS (3)
  1. CELEBRA [Suspect]
     Indication: INTERVERTEBRAL DISC PROTRUSION
     Dosage: 1 CAPSULE (200 MG), ONCE A DAY
     Dates: start: 2009
  2. CELEBRA [Suspect]
     Indication: EXOSTOSIS
  3. CELEBRA [Suspect]
     Indication: BONE CYST

REACTIONS (3)
  - Cardiac disorder [Unknown]
  - Off label use [Unknown]
  - Oedema peripheral [Unknown]
